FAERS Safety Report 14759541 (Version 1)
Quarter: 2018Q2

REPORT INFORMATION
  Report Type: Report from Study
  Country: US (occurrence: US)
  Receive Date: 20180413
  Receipt Date: 20180413
  Transmission Date: 20180711
  Serious: Yes (Death)
  Sender: FDA-Public Use
  Company Number: US-PFIZER INC-2018151399

PATIENT
  Sex: Female

DRUGS (11)
  1. CYCLOPHOSPHAMIDE. [Suspect]
     Active Substance: CYCLOPHOSPHAMIDE
     Indication: ENDOMETRIAL ADENOCARCINOMA
     Dosage: UNK, EVERY 3 WEEKS (SIX CYCLES)
  2. 5 FLUOROURACIL /00098801/ [Suspect]
     Active Substance: FLUOROURACIL
     Indication: BREAST CANCER STAGE II
  3. TAMOXIFEN [Suspect]
     Active Substance: TAMOXIFEN
     Dosage: UNK
  4. CYCLOPHOSPHAMIDE. [Suspect]
     Active Substance: CYCLOPHOSPHAMIDE
     Indication: BREAST CANCER STAGE II
     Dosage: 6 G/M2
  5. G-CSF [Concomitant]
     Active Substance: GRANULOCYTE COLONY-STIMULATING FACTOR NOS
  6. ADRIAMYCIN [Suspect]
     Active Substance: DOXORUBICIN HYDROCHLORIDE
     Indication: ENDOMETRIAL ADENOCARCINOMA
     Dosage: UNK UNK, EVERY 3 WEEKS (SIX CYCLES)
  7. CARBOPLATIN. [Concomitant]
     Active Substance: CARBOPLATIN
     Indication: ENDOMETRIAL ADENOCARCINOMA
     Dosage: 800 MG/M2, UNK
  8. ADRIAMYCIN [Suspect]
     Active Substance: DOXORUBICIN HYDROCHLORIDE
     Indication: BREAST CANCER STAGE II
  9. 5 FLUOROURACIL /00098801/ [Suspect]
     Active Substance: FLUOROURACIL
     Indication: ENDOMETRIAL ADENOCARCINOMA
     Dosage: UNK, EVERY 3 WEEKS (SIX CYCLES)
  10. PACLITAXEL. [Suspect]
     Active Substance: PACLITAXEL
     Indication: HAEMATOPOIETIC STEM CELL MOBILISATION
     Dosage: 175 MG/M2, CYCLIC
  11. THIOTEPA. [Concomitant]
     Active Substance: THIOTEPA
     Dosage: 500 MG/M2, UNK

REACTIONS (2)
  - Acute myeloid leukaemia [Fatal]
  - Second primary malignancy [Fatal]
